FAERS Safety Report 9426018 (Version 1)
Quarter: 2013Q3

REPORT INFORMATION
  Report Type: Spontaneous
  Country: CA (occurrence: CA)
  Receive Date: 20130730
  Receipt Date: 20130730
  Transmission Date: 20140515
  Serious: Yes (Hospitalization, Other)
  Sender: FDA-Public Use
  Company Number: CA-ASTRAZENECA-2013SE55991

PATIENT
  Age: 60 Year
  Sex: Male

DRUGS (8)
  1. LEVETIRACETAM [Suspect]
  2. PROPOFOL [Suspect]
     Route: 040
  3. PROPOFOL [Suspect]
     Dosage: 50 UG/KG 1 EVERY 1 MIN
     Route: 042
  4. MIDAZOLAM [Suspect]
     Route: 030
  5. MIDAZOLAM [Suspect]
     Route: 040
  6. PHENYTOIN [Suspect]
     Route: 042
  7. CLOBAZAM [Concomitant]
  8. LEVOFLOXACIN [Concomitant]

REACTIONS (3)
  - Condition aggravated [Unknown]
  - Hypotension [Recovered/Resolved]
  - Drug ineffective [Unknown]
